FAERS Safety Report 7910078-6 (Version None)
Quarter: 2011Q4

REPORT INFORMATION
  Report Type: 
  Country: None (occurrence: None)
  Receive Date: 20111111
  Receipt Date: 20111101
  Transmission Date: 20120403
  Serious: No
  Sender: FDA-Public Use
  Company Number: US-ABBOTT-11P-163-0841928-02

PATIENT
  Sex: Female

DRUGS (14)
  1. HUMIRA [Suspect]
     Indication: CROHN'S DISEASE
     Route: 058
     Dates: start: 20091020
  2. HUMIRA [Suspect]
     Route: 058
     Dates: end: 20100202
  3. ZYRTEC [Concomitant]
     Indication: HYPERSENSITIVITY
  4. HUMIRA [Suspect]
     Dosage: BASELINE
     Route: 058
  5. PREDNISONE TAB [Concomitant]
     Indication: CROHN'S DISEASE
  6. NEXIUM [Concomitant]
     Indication: DYSPEPSIA
  7. ELMIRON [Concomitant]
     Indication: CYSTITIS INTERSTITIAL
  8. PROSED/DS [Concomitant]
     Indication: TUBULOINTERSTITIAL NEPHRITIS
  9. HUMIRA [Suspect]
     Dosage: WEEK 2
     Route: 058
  10. METOPROLOL [Concomitant]
     Indication: HYPERTENSION
  11. ASPIRIN [Concomitant]
     Indication: MYOCARDIAL INFARCTION
  12. HYDROXYZINE [Concomitant]
     Indication: PRODUCT USED FOR UNKNOWN INDICATION
  13. CLONAZEPAM [Concomitant]
     Indication: RESTLESS LEGS SYNDROME
  14. LOMOTIL [Concomitant]
     Indication: DIARRHOEA

REACTIONS (1)
  - LIVER FUNCTION TEST ABNORMAL [None]
